FAERS Safety Report 16181720 (Version 1)
Quarter: 2019Q2

REPORT INFORMATION
  Report Type: Spontaneous
  Country: CN (occurrence: CN)
  Receive Date: 20190410
  Receipt Date: 20190410
  Transmission Date: 20190711
  Serious: Yes (Other)
  Sender: FDA-Public Use
  Company Number: CN-BAXTER-2019BAX007057

PATIENT
  Age: 34 Year
  Sex: Female

DRUGS (8)
  1. DIAZEPAM. [Suspect]
     Active Substance: DIAZEPAM
     Indication: ADVERSE EVENT
     Route: 030
     Dates: start: 20190326
  2. METOCLOPRAMIDE. [Suspect]
     Active Substance: METOCLOPRAMIDE
     Indication: SUPPORTIVE CARE
     Route: 030
     Dates: start: 20190326, end: 20190326
  3. PROMETHAZINE [Suspect]
     Active Substance: PROMETHAZINE\PROMETHAZINE HYDROCHLORIDE
     Indication: ANTIEMETIC SUPPORTIVE CARE
     Route: 065
     Dates: start: 20190326
  4. PROMETHAZINE [Suspect]
     Active Substance: PROMETHAZINE\PROMETHAZINE HYDROCHLORIDE
     Indication: SEDATION
  5. 5% GLUCOSE  INJECTION [Suspect]
     Active Substance: DEXTROSE
     Indication: MEDICATION DILUTION
     Route: 065
     Dates: start: 20190326
  6. RABEPRAZOLE [Suspect]
     Active Substance: RABEPRAZOLE
     Indication: ANTACID THERAPY
     Route: 065
     Dates: start: 20190326
  7. ENDOXAN [Suspect]
     Active Substance: CYCLOPHOSPHAMIDE
     Indication: BREAST CANCER
     Route: 041
     Dates: start: 20190326, end: 20190326
  8. 0.9% SODIUM CHLORIDE INJECTION [Suspect]
     Active Substance: SODIUM CHLORIDE
     Indication: MEDICATION DILUTION
     Route: 065
     Dates: start: 20190326

REACTIONS (12)
  - Depressed level of consciousness [Unknown]
  - Oedema peripheral [Unknown]
  - Delirium [Unknown]
  - Dysphoria [Unknown]
  - Vomiting [Unknown]
  - Dizziness [Unknown]
  - Anuria [Recovered/Resolved]
  - Nausea [Unknown]
  - Speech disorder [Unknown]
  - Headache [Unknown]
  - Hyponatraemia [Recovered/Resolved]
  - Mania [Unknown]

NARRATIVE: CASE EVENT DATE: 20190326
